FAERS Safety Report 10052432 (Version 1)
Quarter: 2014Q2

REPORT INFORMATION
  Report Type: Report from Study
  Country: DE (occurrence: DE)
  Receive Date: 20140402
  Receipt Date: 20140402
  Transmission Date: 20141212
  Serious: Yes (Death, Hospitalization, Other)
  Sender: FDA-Public Use
  Company Number: DE-ASTELLAS-2014US003077

PATIENT
  Age: 74 Year
  Sex: Female

DRUGS (5)
  1. ERLOTINIB TABLET [Suspect]
     Indication: PANCREATIC CARCINOMA
     Dosage: 100 MG, UID/QD
     Route: 048
     Dates: start: 20120112, end: 20120731
  2. GEMCITABINE HYDROCHLORIDE [Suspect]
     Indication: PANCREATIC CARCINOMA
     Dosage: 1560 MG, WEEKLY
     Route: 042
     Dates: start: 20120112, end: 20120731
  3. PANTOPRAZOL [Concomitant]
     Indication: PROPHYLAXIS
     Dosage: 40 MG, UNKNOWN/D
     Route: 048
     Dates: start: 20120717, end: 20121128
  4. RAMIPRIL [Concomitant]
     Indication: HYPERTENSION
     Dosage: 2.5 MG, UID/QD
     Route: 048
     Dates: start: 20120717, end: 20121128
  5. TORASEMID [Concomitant]
     Indication: HYPERTENSION
     Dosage: 5 MG, UNKNOWN/D
     Route: 048
     Dates: start: 2012, end: 20121128

REACTIONS (4)
  - Pain [Unknown]
  - Hepatic failure [Fatal]
  - Cholestasis [Recovered/Resolved]
  - Cholangitis [Recovered/Resolved]
